FAERS Safety Report 8302747 (Version 2)
Quarter: 2014Q1

REPORT INFORMATION
  Report Type: Spontaneous
  Country: US (occurrence: US)
  Receive Date: 20111220
  Receipt Date: 20140102
  Transmission Date: 20141002
  Serious: Yes (Hospitalization)
  Sender: FDA-Public Use
  Company Number: US-GLAXOSMITHKLINE-A0931070A

PATIENT
  Age: 73 Year
  Sex: Male
  Weight: 101.8 kg

DRUGS (1)
  1. AVANDAMET [Suspect]
     Indication: DIABETES MELLITUS
     Route: 048
     Dates: start: 200610, end: 200805

REACTIONS (5)
  - Cardiovascular disorder [Not Recovered/Not Resolved]
  - Cardiac disorder [Unknown]
  - Cerebrovascular accident [Unknown]
  - Renal failure acute [Unknown]
  - Acute respiratory failure [Unknown]
